FAERS Safety Report 7940809-0 (Version None)
Quarter: 2011Q4

REPORT INFORMATION
  Report Type: 
  Country: None (occurrence: None)
  Receive Date: 20111108
  Receipt Date: 20110207
  Transmission Date: 20120403
  Serious: Yes (Hospitalization)
  Sender: FDA-Public Use
  Company Number: PHHY2010US45848

PATIENT
  Age: 70 Year
  Sex: Female

DRUGS (5)
  1. ZOMETA [Suspect]
     Indication: MULTIPLE MYELOMA
     Dosage: 3.3 MG, INTRAVENOUS
     Route: 042
     Dates: start: 20100406
  2. LERCANIDIPINE [Concomitant]
  3. REVLIMID [Suspect]
     Indication: MULTIPLE MYELOMA
     Dosage: 10 MG, ORAL 5 MG, ORAL
     Route: 048
     Dates: start: 20100501
  4. REVLIMID [Suspect]
     Indication: MULTIPLE MYELOMA
     Dosage: 10 MG, ORAL 5 MG, ORAL
     Route: 048
     Dates: start: 20100322, end: 20100409
  5. BENICAR [Concomitant]

REACTIONS (1)
  - RENAL FAILURE [None]
